FAERS Safety Report 7209555-5 (Version None)
Quarter: 2011Q1

REPORT INFORMATION
  Report Type: 
  Country: None (occurrence: None)
  Receive Date: 20110104
  Receipt Date: 20101227
  Transmission Date: 20110831
  Serious: Yes (Death, Other)
  Sender: FDA-Public Use
  Company Number: JP-GENZYME-THYM-1002230

PATIENT
  Sex: Male
  Weight: 50 kg

DRUGS (11)
  1. METHOTREXATE [Concomitant]
     Indication: ACUTE GRAFT VERSUS HOST DISEASE
     Dosage: UNK
     Dates: start: 20100909, end: 20100914
  2. DANAPAROID SODIUM [Concomitant]
     Indication: PROPHYLAXIS
     Dosage: UNK
     Dates: start: 20101126, end: 20101126
  3. ACYCLOVIR [Concomitant]
     Indication: PROPHYLAXIS
     Dosage: UNK
     Dates: end: 20101202
  4. ZOSYN [Concomitant]
     Indication: HUMAN HERPESVIRUS 6 INFECTION
     Dosage: UNK
     Dates: end: 20101204
  5. FILGRASTIM [Concomitant]
     Indication: NEUTROPHIL COUNT INCREASED
     Dosage: UNK
     Dates: end: 20101204
  6. CYCLOSPORINE [Concomitant]
     Indication: ACUTE GRAFT VERSUS HOST DISEASE
     Dosage: UNK
     Dates: start: 20100907, end: 20101110
  7. ENTECAVIR [Concomitant]
     Indication: HEPATITIS B
     Dosage: UNK
     Dates: end: 20101202
  8. VANCOMYCIN HYDROCHLORIDE [Concomitant]
     Indication: PSEUDOMONAL BACTERAEMIA
     Dosage: UNK
     Dates: end: 20101120
  9. METHYLPREDNISOLONE SODIUM SUCCINATE [Concomitant]
     Indication: PREMEDICATION
     Dosage: UNK
     Dates: start: 20101126, end: 20101127
  10. THYMOGLOBULIN [Suspect]
     Indication: ACUTE GRAFT VERSUS HOST DISEASE
     Dosage: 100 MG, QD
     Route: 042
     Dates: start: 20101126, end: 20101127
  11. AMPHOTERICIN B [Concomitant]
     Indication: BRONCHOPULMONARY ASPERGILLOSIS
     Dosage: UNK
     Dates: end: 20101126

REACTIONS (2)
  - WHITE BLOOD CELL COUNT DECREASED [None]
  - GRAFT VERSUS HOST DISEASE [None]
